FAERS Safety Report 19475780 (Version 1)
Quarter: 2021Q2

REPORT INFORMATION
  Report Type: Spontaneous
  Country: TW (occurrence: TW)
  Receive Date: 20210630
  Receipt Date: 20210630
  Transmission Date: 20210717
  Serious: Yes (Hospitalization)
  Sender: FDA-Public Use
  Company Number: NVSC2021TW143618

PATIENT
  Age: 53 Year
  Sex: Male

DRUGS (1)
  1. AMLODIPINE,HYDROCHLOROTHIAZIDE,VALSARTAN [Suspect]
     Active Substance: AMLODIPINE\HYDROCHLOROTHIAZIDE\VALSARTAN
     Indication: HYPERTENSION
     Dosage: UNK
     Route: 048

REACTIONS (3)
  - Rhabdomyolysis [Recovering/Resolving]
  - Drug ineffective [Unknown]
  - Hypokalaemia [Recovering/Resolving]
